FAERS Safety Report 18441115 (Version 1)
Quarter: 2020Q4

REPORT INFORMATION
  Report Type: Spontaneous
  Country: FR (occurrence: FR)
  Receive Date: 20201029
  Receipt Date: 20201029
  Transmission Date: 20210114
  Serious: Yes (Other)
  Sender: FDA-Public Use
  Company Number: FR-GRANULES-FR-2020GRALIT00030

PATIENT
  Age: 49 Year
  Sex: Male

DRUGS (5)
  1. PIPERACILLIN AND TAZOBACTAM [Interacting]
     Active Substance: PIPERACILLIN SODIUM\TAZOBACTAM SODIUM
     Indication: NECROTISING SOFT TISSUE INFECTION
  2. IBUPROFEN. [Suspect]
     Active Substance: IBUPROFEN
     Indication: NECROTISING SOFT TISSUE INFECTION
     Route: 065
  3. CLINDAMYCIN. [Interacting]
     Active Substance: CLINDAMYCIN
     Indication: NECROTISING SOFT TISSUE INFECTION
  4. PIPERACILLIN AND TAZOBACTAM [Interacting]
     Active Substance: PIPERACILLIN SODIUM\TAZOBACTAM SODIUM
     Indication: NECROTISING SOFT TISSUE INFECTION
     Route: 042
  5. CLINDAMYCIN. [Interacting]
     Active Substance: CLINDAMYCIN
     Indication: NECROTISING SOFT TISSUE INFECTION
     Route: 042

REACTIONS (2)
  - Beta haemolytic streptococcal infection [Recovered/Resolved]
  - Necrotising soft tissue infection [Unknown]
